FAERS Safety Report 17351387 (Version 1)
Quarter: 2020Q1

REPORT INFORMATION
  Report Type: Spontaneous
  Country: CN (occurrence: CN)
  Receive Date: 20200130
  Receipt Date: 20200130
  Transmission Date: 20200409
  Serious: Yes (Other)
  Sender: FDA-Public Use
  Company Number: CN-ASTRAZENECA-2020SE12129

PATIENT
  Age: 37 Year
  Sex: Female

DRUGS (1)
  1. GEFITINIB. [Suspect]
     Active Substance: GEFITINIB
     Indication: LUNG ADENOCARCINOMA
     Route: 048
     Dates: start: 201412

REACTIONS (4)
  - ROS1 gene rearrangement [Unknown]
  - Drug resistance [Unknown]
  - Rash [Unknown]
  - Malignant neoplasm progression [Not Recovered/Not Resolved]
